FAERS Safety Report 21308508 (Version 2)
Quarter: 2022Q3

REPORT INFORMATION
  Report Type: Spontaneous
  Country: FR (occurrence: FR)
  Receive Date: 20220908
  Receipt Date: 20220926
  Transmission Date: 20221026
  Serious: Yes (Other)
  Sender: FDA-Public Use
  Company Number: FR-TEVA-2022-FR-2070327

PATIENT
  Age: 51 Year

DRUGS (1)
  1. FLUOROURACIL [Suspect]
     Active Substance: FLUOROURACIL
     Indication: Neuroendocrine carcinoma
     Dosage: 50% OF STANDARD DOSE
     Route: 065

REACTIONS (2)
  - Tumour lysis syndrome [Unknown]
  - Acute kidney injury [Unknown]
